FAERS Safety Report 8638488 (Version 3)
Quarter: 2012Q4

REPORT INFORMATION
  Report Type: 
  Country: US (occurrence: US)
  Receive Date: 20120627
  Receipt Date: 20121022
  Transmission Date: 20130627
  Serious: Yes (Death, Hospitalization)
  Sender: FDA-Public Use
  Company Number: US-JNJFOC-20120609870

PATIENT
  Sex: Male
  Weight: 106.6 kg

DRUGS (13)
  1. REMICADE [Suspect]
     Indication: RHEUMATOID ARTHRITIS
     Route: 042
     Dates: start: 20120524, end: 20120524
  2. HYDROCODONE [Concomitant]
     Indication: PAIN
     Dosage: 500mg/tablet/500mg/every 6

hours as needed
     Route: 048
  3. FUROSEMIDE [Concomitant]
     Indication: DIURETIC THERAPY
     Route: 048
  4. METOPROLOL [Concomitant]
     Indication: BLOOD PRESSURE
     Dosage: once in evening
     Route: 048
  5. PREDNISONE [Concomitant]
     Indication: PRODUCT USED FOR UNKNOWN INDICATION
     Route: 048
     Dates: start: 2011
  6. HYDROCHLOROTHIAZIDE [Concomitant]
     Indication: PRODUCT USED FOR UNKNOWN INDICATION
     Route: 048
  7. METHOTREXATE [Concomitant]
     Indication: ARTHRITIS
     Dosage: 15mg/tablet/2.5mg/once a

week/oral
     Route: 048
  8. GLIMEPIRIDE [Concomitant]
     Indication: BLOOD PRESSURE
     Route: 048
     Dates: start: 2011
  9. LISINOPRIL [Concomitant]
     Indication: BLOOD PRESSURE
     Route: 048
  10. BABY ASPIRIN [Concomitant]
     Indication: ANTICOAGULANT THERAPY
     Route: 048
  11. FOLIC ACID [Concomitant]
     Indication: PRODUCT USED FOR UNKNOWN INDICATION
     Route: 048
     Dates: start: 2011
  12. ADVAIR [Concomitant]
     Route: 065
  13. FLUTICASONE PROPIONATE [Concomitant]
     Route: 065

REACTIONS (2)
  - Lung cancer metastatic [Recovered/Resolved]
  - Death [Fatal]
